FAERS Safety Report 12787974 (Version 1)
Quarter: 2016Q3

REPORT INFORMATION
  Report Type: Spontaneous
  Country: US (occurrence: US)
  Receive Date: 20160928
  Receipt Date: 20160928
  Transmission Date: 20161109
  Serious: No
  Sender: FDA-Public Use
  Company Number: US-TEVA-593353USA

PATIENT
  Age: 73 Year
  Sex: Male
  Weight: 111.23 kg

DRUGS (6)
  1. CLARITIN [Concomitant]
     Active Substance: LORATADINE
  2. METOPROLOL. [Suspect]
     Active Substance: METOPROLOL
     Route: 065
  3. HYDROXYCHLOROQUINE [Suspect]
     Active Substance: HYDROXYCHLOROQUINE
     Route: 065
  4. SUTENT [Suspect]
     Active Substance: SUNITINIB MALATE
     Indication: METASTATIC RENAL CELL CARCINOMA
     Dosage: 37.5MG ALT 25MG DAILY ; 2 WKS ON/1 WK OFF
  5. ZOMETA [Concomitant]
     Active Substance: ZOLEDRONIC ACID
  6. DESONIDE. [Concomitant]
     Active Substance: DESONIDE

REACTIONS (4)
  - Heart rate increased [Unknown]
  - Blood pressure increased [Unknown]
  - Drug hypersensitivity [Unknown]
  - Drug dose omission [Unknown]

NARRATIVE: CASE EVENT DATE: 201511
